FAERS Safety Report 12828393 (Version 2)
Quarter: 2016Q4

REPORT INFORMATION
  Report Type: Report from Study
  Country: None (occurrence: NL)
  Receive Date: 20161007
  Receipt Date: 20161019
  Transmission Date: 20170207
  Serious: Yes (Other)
  Sender: FDA-Public Use
  Company Number: NL-ABBVIE-15P-114-1332451-00

PATIENT
  Age: 52 Year
  Sex: Female
  Weight: 56 kg

DRUGS (3)
  1. METHYLCELLULOSE EYEDROPS [Concomitant]
     Indication: PRODUCT USED FOR UNKNOWN INDICATION
     Dosage: 5MG/ML FL 10ML
     Route: 047
  2. LUCRIN DEPOT [Suspect]
     Active Substance: LEUPROLIDE ACETATE
     Indication: ENDOMETRIOSIS
     Route: 058
     Dates: start: 20140731
  3. LUPRON DEPOT [Suspect]
     Active Substance: LEUPROLIDE ACETATE
     Indication: DYSFUNCTIONAL UTERINE BLEEDING
     Route: 030
     Dates: start: 20161003

REACTIONS (14)
  - Dysfunctional uterine bleeding [Recovered/Resolved]
  - Dysfunctional uterine bleeding [Recovered/Resolved]
  - Vaginal haemorrhage [Not Recovered/Not Resolved]
  - Dysfunctional uterine bleeding [Recovered/Resolved]
  - Vaginal haemorrhage [Recovered/Resolved]
  - Pain [Unknown]
  - Haematoma [Not Recovered/Not Resolved]
  - Headache [Not Recovered/Not Resolved]
  - Irritability [Unknown]
  - Dysfunctional uterine bleeding [Recovered/Resolved]
  - Dysfunctional uterine bleeding [Recovered/Resolved]
  - Vulvovaginal dryness [Unknown]
  - Dry skin [Not Recovered/Not Resolved]
  - Dysfunctional uterine bleeding [Recovered/Resolved]

NARRATIVE: CASE EVENT DATE: 20141023
